FAERS Safety Report 6821432-8 (Version None)
Quarter: 2010Q3

REPORT INFORMATION
  Report Type: 
  Country: None (occurrence: None)
  Receive Date: 20100707
  Receipt Date: 20081031
  Transmission Date: 20110219
  Serious: No
  Sender: FDA-Public Use
  Company Number: US-PFIZER INC-2008092376

PATIENT
  Age: 45 Year
  Sex: Female
  Weight: 129.27 kg

DRUGS (2)
  1. ZOLOFT [Suspect]
     Indication: DEPRESSION
     Dates: start: 20080901
  2. ZYRTEC [Suspect]
     Indication: HYPERSENSITIVITY
     Dates: start: 20080925

REACTIONS (1)
  - RASH [None]
